FAERS Safety Report 5643344-8 (Version None)
Quarter: 2008Q1

REPORT INFORMATION
  Report Type: 
  Country: None (occurrence: None)
  Receive Date: 20080228
  Receipt Date: 20080222
  Transmission Date: 20080703
  Serious: Yes (Other)
  Sender: FDA-Public Use
  Company Number: JP-ASTRAZENECA-2008AP01377

PATIENT
  Age: 1 Year
  Sex: Female
  Weight: 10 kg

DRUGS (11)
  1. PULMICORT [Suspect]
     Indication: ASTHMA
     Route: 055
     Dates: start: 20070728
  2. ONON DRYSYRUP [Concomitant]
     Indication: ASTHMA
     Dosage: NUMBER OF SEPARATE DOSAGES UNKNOWN
     Route: 048
  3. THEO-DUR [Concomitant]
     Indication: ASTHMA
     Dosage: NUMBER OF SEPARATE DOSAGES UNKNOWN
     Route: 048
  4. HOKUNALIN:TAPE [Concomitant]
     Indication: ASTHMA
     Dosage: NUMBER OF SEPARATE DOSAGES UNKNOWN
     Route: 062
  5. MUCODYNE [Concomitant]
     Indication: ASTHMA
     Dosage: NUMBER OF SEPARATE DOSAGES UNKNOWN
     Route: 048
  6. PULSMARIN A [Concomitant]
     Indication: ASTHMA
     Dosage: NUMBER OF SEPARATE DOSAGES UNKNOWN
     Route: 048
  7. INTAL [Concomitant]
     Indication: ASTHMA
     Dosage: NUMBER OF SEPARATE DOSAGES UNKNOWN
     Route: 055
  8. VENETLIN [Concomitant]
     Indication: ASTHMA
     Dosage: NUMBER OF SEPARATE DOSAGES UNKNOWN
     Route: 055
  9. PERIACTIN [Concomitant]
     Indication: NASOPHARYNGITIS
     Dosage: AS NEEDED
     Route: 048
     Dates: start: 20070807
  10. ASVERIN [Concomitant]
     Indication: PHARYNGITIS
     Dosage: AS NEEDED
     Route: 048
     Dates: start: 20070904
  11. PREDNISOLONE [Concomitant]
     Indication: ASTHMA
     Dosage: AS NEEDED
     Route: 048
     Dates: start: 20071116, end: 20071118

REACTIONS (1)
  - BLOOD CORTICOTROPHIN DECREASED [None]
